FAERS Safety Report 7335345-9 (Version None)
Quarter: 2011Q1

REPORT INFORMATION
  Report Type: 
  Country: None (occurrence: None)
  Receive Date: 20110307
  Receipt Date: 20110302
  Transmission Date: 20110831
  Serious: No
  Sender: FDA-Public Use
  Company Number: US-PFIZER INC-2011007447

PATIENT
  Sex: Male

DRUGS (6)
  1. NITROSTAT [Suspect]
     Indication: ANGINA PECTORIS
     Dosage: 0.4 MG, AS NEEDED
     Route: 060
     Dates: start: 20100101
  2. NAPROXEN [Concomitant]
     Dosage: 500 MG, UNK
  3. CLONIDINE [Concomitant]
     Dosage: 0.1 MG, UNK
  4. POTASSIUM [Concomitant]
     Dosage: 10 MEQ, UNK
  5. METOPROLOL [Concomitant]
     Dosage: 50 MG, UNK
  6. ACETYLSALICYLIC ACID [Concomitant]
     Dosage: UNK

REACTIONS (1)
  - DRUG INEFFECTIVE [None]
